FAERS Safety Report 4766850-7 (Version None)
Quarter: 2005Q3

REPORT INFORMATION
  Report Type: 
  Country: None (occurrence: None)
  Receive Date: 20050909
  Receipt Date: 20050902
  Transmission Date: 20060218
  Serious: No
  Sender: FDA-Public Use
  Company Number: LNL-100133-NL

PATIENT
  Age: 72 Year
  Sex: Male

DRUGS (6)
  1. ROCURONIUM BROMIDE [Suspect]
     Indication: MUSCLE RELAXANT THERAPY
     Dosage: 50 MG ONCE INTRAVENOUS (NOS)
     Route: 042
     Dates: start: 19970916, end: 19970916
  2. POLYGELINE [Suspect]
     Indication: MUSCLE RELAXANT THERAPY
     Dosage: 500 ML ONCE INTRAVENOUS (NOS)
     Route: 042
     Dates: start: 19970919, end: 19970916
  3. THYROXINE SODIUM [Concomitant]
  4. ALBUTEROL SULFATE HFA [Concomitant]
  5. ASPIRIN [Concomitant]
  6. METOPROLOL TARTRATE [Concomitant]

REACTIONS (3)
  - ANAPHYLACTOID REACTION [None]
  - PROCEDURAL COMPLICATION [None]
  - VENTRICULAR FIBRILLATION [None]
